FAERS Safety Report 11703919 (Version 1)
Quarter: 2015Q4

REPORT INFORMATION
  Report Type: Spontaneous
  Country: GB (occurrence: GB)
  Receive Date: 20151106
  Receipt Date: 20151106
  Transmission Date: 20160304
  Serious: Yes (Other)
  Sender: FDA-Public Use
  Company Number: GB-ACCORD-035012

PATIENT
  Age: 78 Year
  Sex: Female
  Weight: 89 kg

DRUGS (11)
  1. IBUPROFEN. [Concomitant]
     Active Substance: IBUPROFEN
     Dosage: APPLY 3-4 TIMES A DAY
     Route: 061
     Dates: start: 20150904, end: 20150905
  2. OXYCODONE [Concomitant]
     Active Substance: OXYCODONE
     Dates: start: 20150904, end: 20151002
  3. TRAMADOL/TRAMADOL HYDROCHLORIDE [Suspect]
     Active Substance: TRAMADOL HYDROCHLORIDE
     Indication: PRODUCT USED FOR UNKNOWN INDICATION
     Dates: start: 20151014
  4. CODEINE [Suspect]
     Active Substance: CODEINE
     Indication: PRODUCT USED FOR UNKNOWN INDICATION
     Dates: start: 20151014
  5. BENDROFLUMETHIAZIDE [Concomitant]
     Active Substance: BENDROFLUMETHIAZIDE
     Dosage: EACH MORNING
     Dates: start: 20140910
  6. DICLOFENAC [Concomitant]
     Active Substance: DICLOFENAC
     Dates: start: 20130626
  7. VALPROIC ACID. [Concomitant]
     Active Substance: VALPROIC ACID
     Dates: start: 20100513
  8. COCODAMOL [Concomitant]
     Active Substance: ACETAMINOPHEN\CODEINE PHOSPHATE
     Dosage: TAKE 1 OR 2
     Dates: start: 20150930
  9. RANITIDINE [Concomitant]
     Active Substance: RANITIDINE\RANITIDINE HYDROCHLORIDE
     Dates: start: 20120726
  10. SIMVASTATIN. [Concomitant]
     Active Substance: SIMVASTATIN
     Dates: start: 20100513
  11. COLCHICINE. [Concomitant]
     Active Substance: COLCHICINE
     Dosage: 2-4 TIMES A DAY (MAX 12 TABLETS)
     Dates: start: 20150930, end: 20151003

REACTIONS (2)
  - Vomiting [Recovered/Resolved]
  - Blister [Recovered/Resolved]

NARRATIVE: CASE EVENT DATE: 20151014
